FAERS Safety Report 24714838 (Version 1)
Quarter: 2024Q4

REPORT INFORMATION
  Report Type: Spontaneous
  Country: US (occurrence: US)
  Receive Date: 20241210
  Receipt Date: 20241210
  Transmission Date: 20250115
  Serious: No
  Sender: ABBVIE
  Company Number: US-ABBVIE-6036295

PATIENT
  Sex: Female

DRUGS (4)
  1. REFRESH RELIEVA PF XTRA [Suspect]
     Active Substance: CARBOXYMETHYLCELLULOSE SODIUM\GLYCERIN
     Indication: Dry eye
     Dosage: 1 DROP IN EACH EYE CMC AND GLYCERIN CONTAINER CLOSURE SYSTEM COMBO
     Route: 047
     Dates: start: 202408
  2. REFRESH RELIEVA PF XTRA [Suspect]
     Active Substance: CARBOXYMETHYLCELLULOSE SODIUM\GLYCERIN
  3. REFRESH RELIEVA PF XTRA [Suspect]
     Active Substance: CARBOXYMETHYLCELLULOSE SODIUM\GLYCERIN
  4. ESTRADIOL [Concomitant]
     Active Substance: ESTRADIOL
     Indication: Product used for unknown indication
     Route: 061

REACTIONS (6)
  - Dry eye [Recovered/Resolved]
  - Drug intolerance [Not Recovered/Not Resolved]
  - Eye irritation [Recovered/Resolved]
  - Drug ineffective [Not Recovered/Not Resolved]
  - Eye disorder [Unknown]
  - Eye pain [Recovered/Resolved]

NARRATIVE: CASE EVENT DATE: 20240101
